FAERS Safety Report 13340057 (Version 3)
Quarter: 2017Q1

REPORT INFORMATION
  Report Type: Spontaneous
  Country: IT (occurrence: IT)
  Receive Date: 20170316
  Receipt Date: 20170327
  Transmission Date: 20170428
  Serious: Yes (Other)
  Sender: FDA-Public Use
  Company Number: IT-SUN PHARMACEUTICAL INDUSTRIES LTD-2017RR-135612

PATIENT
  Age: 17 Year
  Sex: Male

DRUGS (2)
  1. CLARITHROMYCIN. [Suspect]
     Active Substance: CLARITHROMYCIN
     Indication: TONSILLITIS BACTERIAL
     Dosage: UNK, DAILY
     Route: 048
  2. CEFIXORAL [Suspect]
     Active Substance: CEFIXIME
     Indication: TONSILLITIS BACTERIAL
     Dosage: UNK, DAILY
     Route: 048

REACTIONS (2)
  - Erythema [Unknown]
  - Purpura [Unknown]

NARRATIVE: CASE EVENT DATE: 20161025
